FAERS Safety Report 8349017-5 (Version None)
Quarter: 2012Q2

REPORT INFORMATION
  Report Type: 
  Country: None (occurrence: None)
  Receive Date: 20120510
  Receipt Date: 20120501
  Transmission Date: 20120825
  Serious: No
  Sender: FDA-Public Use
  Company Number: CA-JNJFOC-20120503402

PATIENT
  Sex: Female
  Weight: 99.6 kg

DRUGS (11)
  1. REMICADE [Suspect]
     Indication: RHEUMATOID ARTHRITIS
     Route: 042
     Dates: start: 20090825
  2. REMICADE [Suspect]
     Dosage: PATIENT'S 20TH INFUSION
     Route: 042
     Dates: start: 20120501
  3. HYDROCHLOROTHIAZIDE [Concomitant]
     Indication: HYPERTENSION
     Route: 048
  4. TYLENOL W/ CODEINE NO. 3 [Concomitant]
     Indication: ARTHRALGIA
     Route: 048
  5. ALL OTHER THERAPEUTIC PRODUCTS [Concomitant]
     Indication: OSTEOPOROSIS
     Route: 048
  6. CALCIUM [Concomitant]
     Route: 048
  7. RANITIDINE [Concomitant]
     Indication: ABDOMINAL DISCOMFORT
     Route: 048
  8. FOLIC ACID [Concomitant]
     Route: 048
  9. METHOTREXATE [Concomitant]
     Indication: RHEUMATOID ARTHRITIS
     Route: 048
  10. VITAMIN D [Concomitant]
     Route: 048
  11. VALTREX [Concomitant]
     Indication: ANTIVIRAL PROPHYLAXIS
     Route: 048

REACTIONS (1)
  - HERPES ZOSTER [None]
